FAERS Safety Report 5121743-0 (Version None)
Quarter: 2006Q4

REPORT INFORMATION
  Report Type: 
  Country: None (occurrence: None)
  Receive Date: 20061006
  Receipt Date: 20060824
  Transmission Date: 20070319
  Serious: Yes (Other)
  Sender: FDA-Public Use
  Company Number: PHBS2006JP12967

PATIENT
  Age: 80 Year
  Sex: Female

DRUGS (4)
  1. NEORAL [Suspect]
     Indication: INTERSTITIAL LUNG DISEASE
     Dosage: 200 MG/D
     Route: 048
     Dates: start: 20060808, end: 20060801
  2. NEORAL [Suspect]
     Dosage: 150 MG/D
     Route: 048
     Dates: start: 20060801, end: 20060824
  3. NEORAL [Suspect]
     Dosage: 200 MG/D
     Route: 048
     Dates: start: 20060905
  4. BACTRIM [Suspect]
     Route: 065

REACTIONS (4)
  - ABNORMAL BEHAVIOUR [None]
  - BLOOD SODIUM DECREASED [None]
  - INAPPROPRIATE ANTIDIURETIC HORMONE SECRETION [None]
  - SENILE DEMENTIA [None]
